FAERS Safety Report 6324005-9 (Version None)
Quarter: 2009Q3

REPORT INFORMATION
  Report Type: 
  Country: None (occurrence: None)
  Receive Date: 20090824
  Receipt Date: 20090819
  Transmission Date: 20100115
  Serious: Yes (Hospitalization)
  Sender: FDA-Public Use
  Company Number: B0589712A

PATIENT
  Sex: Male

DRUGS (11)
  1. NABUCOX [Suspect]
     Dosage: 1G PER DAY
     Route: 048
     Dates: start: 20090606, end: 20090613
  2. EXOMUC [Suspect]
     Indication: BRONCHITIS
     Dosage: 200MG THREE TIMES PER DAY
     Route: 048
     Dates: start: 20090606, end: 20090613
  3. CEFUROXIME [Suspect]
     Indication: BRONCHITIS
     Dosage: 500MG TWICE PER DAY
     Route: 048
     Dates: start: 20090606, end: 20090614
  4. FLUTICASONE [Suspect]
     Indication: BRONCHITIS
     Route: 045
     Dates: start: 20090606, end: 20090706
  5. PRAVASTATIN [Suspect]
     Dosage: 1TAB PER DAY
     Route: 048
     Dates: end: 20090121
  6. ASPIRIN [Suspect]
     Indication: DRUG USE FOR UNKNOWN INDICATION
     Route: 065
     Dates: end: 20090621
  7. COKENZEN [Concomitant]
  8. MODOPAR [Concomitant]
  9. REQUIP [Concomitant]
  10. SERETIDE [Concomitant]
     Route: 055
  11. LANSOPRAZOLE [Concomitant]

REACTIONS (1)
  - ASTHMATIC CRISIS [None]
